FAERS Safety Report 16312505 (Version 1)
Quarter: 2019Q2

REPORT INFORMATION
  Report Type: Spontaneous
  Country: US (occurrence: US)
  Receive Date: 20190515
  Receipt Date: 20190515
  Transmission Date: 20190711
  Serious: No
  Sender: FDA-Public Use
  Company Number: US-TEVA-2019-US-1045922

PATIENT
  Age: 76 Year
  Sex: Female

DRUGS (1)
  1. BUPRENORPHINE TRANSDERMAL SYSTEM [Suspect]
     Active Substance: BUPRENORPHINE
     Indication: ARTHRALGIA
     Dosage: 15 MCG/ HR
     Route: 062
     Dates: start: 201812

REACTIONS (6)
  - Drug ineffective [Unknown]
  - Gait disturbance [Unknown]
  - Product adhesion issue [Unknown]
  - Walking aid user [Unknown]
  - Hyperhidrosis [Unknown]
  - Pain in extremity [Unknown]

NARRATIVE: CASE EVENT DATE: 201904
